FAERS Safety Report 9365173 (Version 2)
Quarter: 2013Q3

REPORT INFORMATION
  Report Type: Spontaneous
  Country: US (occurrence: US)
  Receive Date: 20130624
  Receipt Date: 20130717
  Transmission Date: 20140515
  Serious: Yes (Hospitalization)
  Sender: FDA-Public Use
  Company Number: PHHY2013US062712

PATIENT
  Age: 73 Year
  Sex: Male

DRUGS (1)
  1. TOPIRAMATE [Suspect]
     Indication: HEADACHE

REACTIONS (6)
  - Papilloedema [Unknown]
  - Vision blurred [Unknown]
  - Perseveration [Unknown]
  - Mental status changes [Recovering/Resolving]
  - Disorientation [Unknown]
  - Headache [Unknown]
